FAERS Safety Report 14939209 (Version 1)
Quarter: 2018Q2

REPORT INFORMATION
  Report Type: Spontaneous
  Country: LB (occurrence: LB)
  Receive Date: 20180525
  Receipt Date: 20180525
  Transmission Date: 20180711
  Serious: Yes (Hospitalization)
  Sender: FDA-Public Use
  Company Number: LB-PFIZER INC-2018211802

PATIENT
  Age: 56 Year
  Sex: Male

DRUGS (3)
  1. FOLINIC ACID [Suspect]
     Active Substance: LEUCOVORIN
     Indication: CENTRAL NERVOUS SYSTEM LYMPHOMA
     Dosage: UNK UNK, CYCLIC (STANDARD,  6 TO 8 CYCLES GIVEN EVERY 3 WEEKS)
  2. METHOTREXATE SODIUM. [Suspect]
     Active Substance: METHOTREXATE SODIUM
     Indication: CENTRAL NERVOUS SYSTEM LYMPHOMA
     Dosage: UNK UNK, CYCLIC (3 G/M2 INFUSED OVER 24 HOURS ON DAY 1, FOR 6 TO 8 CYCLES GIVEN EVERY 3 WEEKS)
  3. ARA-C [Suspect]
     Active Substance: CYTARABINE
     Indication: CENTRAL NERVOUS SYSTEM LYMPHOMA
     Dosage: UNK UNK, CYCLIC (2 G/M2 TWICE DAILY ON DAYS 2 AND 3, 6 TO 8 CYCLES GIVEN EVERY 3 WE EKS)

REACTIONS (4)
  - Acute kidney injury [Recovered/Resolved]
  - Thrombocytopenia [Recovered/Resolved]
  - Hypersensitivity vasculitis [Recovered/Resolved]
  - Febrile neutropenia [Recovered/Resolved]
